FAERS Safety Report 4980128-8 (Version None)
Quarter: 2006Q2

REPORT INFORMATION
  Report Type: 
  Country: None (occurrence: None)
  Receive Date: 20060421
  Receipt Date: 20051129
  Transmission Date: 20061013
  Serious: Yes (Death, Hospitalization)
  Sender: FDA-Public Use
  Company Number: US-MERCK-0511USA04501

PATIENT
  Age: 65 Year
  Sex: Male
  Weight: 180 kg

DRUGS (1)
  1. VIOXX [Suspect]
     Indication: ARTHRITIS
     Route: 048
     Dates: start: 20040101

REACTIONS (16)
  - CARDIOPULMONARY FAILURE [None]
  - DIABETES MELLITUS [None]
  - DILATATION VENTRICULAR [None]
  - ELECTROCARDIOGRAM POOR R-WAVE PROGRESSION [None]
  - HYPERTENSIVE CARDIOMEGALY [None]
  - INCISION SITE COMPLICATION [None]
  - LOBAR PNEUMONIA [None]
  - MYOCARDIAL INFARCTION [None]
  - OBESITY [None]
  - PERICARDITIS [None]
  - PICKWICKIAN SYNDROME [None]
  - PULMONARY EMBOLISM [None]
  - SEPSIS [None]
  - SLEEP APNOEA SYNDROME [None]
  - VENTRICULAR HYPERTROPHY [None]
  - WOUND INFECTION [None]
